FAERS Safety Report 13089639 (Version 1)
Quarter: 2017Q1

REPORT INFORMATION
  Report Type: Spontaneous
  Country: US (occurrence: US)
  Receive Date: 20170105
  Receipt Date: 20170105
  Transmission Date: 20170428
  Serious: No
  Sender: FDA-Public Use
  Company Number: US-ASTRAZENECA-2016SF32027

PATIENT
  Age: 59 Year
  Sex: Female
  Weight: 68 kg

DRUGS (8)
  1. SYMBICORT [Suspect]
     Active Substance: BUDESONIDE\FORMOTEROL FUMARATE DIHYDRATE
     Indication: CHRONIC OBSTRUCTIVE PULMONARY DISEASE
     Dosage: 160/4.5MCG, 2 PUFFS, TWICE DAILY
     Route: 055
     Dates: start: 2008
  2. BRIMINIDINE TARTRATE [Concomitant]
     Indication: GLAUCOMA
     Dosage: EVERY 12 HOURS
     Route: 047
     Dates: start: 2014
  3. MAGNESIUM [Concomitant]
     Active Substance: MAGNESIUM
  4. IBRUPROFEN [Concomitant]
     Active Substance: IBUPROFEN
     Indication: BACK PAIN
  5. LATANOPROST. [Concomitant]
     Active Substance: LATANOPROST
     Indication: GLAUCOMA
     Dosage: AT NIGHT
     Route: 047
     Dates: start: 2014
  6. HYDROCHLOROTHIAZIDE. [Concomitant]
     Active Substance: HYDROCHLOROTHIAZIDE
     Indication: CHRONIC OBSTRUCTIVE PULMONARY DISEASE
     Route: 048
     Dates: start: 2013
  7. HYDROCHLOROTHIAZIDE. [Concomitant]
     Active Substance: HYDROCHLOROTHIAZIDE
     Indication: FLUID RETENTION
     Route: 048
     Dates: start: 2013
  8. COMBIVENT [Concomitant]
     Active Substance: ALBUTEROL SULFATE\IPRATROPIUM BROMIDE

REACTIONS (13)
  - Glaucoma [Unknown]
  - Arthritis [Unknown]
  - Weight increased [Unknown]
  - Contusion [Unknown]
  - Muscle spasms [Unknown]
  - Bronchitis [Unknown]
  - Pain in extremity [Unknown]
  - Sneezing [Unknown]
  - Respiratory rate decreased [Unknown]
  - Heart rate increased [Unknown]
  - Skin disorder [Unknown]
  - Sinus pain [Unknown]
  - Back pain [Unknown]

NARRATIVE: CASE EVENT DATE: 2010
